FAERS Safety Report 18220495 (Version 2)
Quarter: 2020Q3

REPORT INFORMATION
  Report Type: Spontaneous
  Country: FR (occurrence: FR)
  Receive Date: 20200902
  Receipt Date: 20200916
  Transmission Date: 20201103
  Serious: Yes (Hospitalization)
  Sender: FDA-Public Use
  Company Number: FR-ROCHE-2665857

PATIENT
  Age: 63 Year
  Sex: Female

DRUGS (4)
  1. OCREVUS [Suspect]
     Active Substance: OCRELIZUMAB
     Dosage: D15
     Route: 065
     Dates: start: 20190822
  2. OCREVUS [Suspect]
     Active Substance: OCRELIZUMAB
     Dosage: M6
     Route: 065
     Dates: start: 202002
  3. OCREVUS [Suspect]
     Active Substance: OCRELIZUMAB
     Indication: MULTIPLE SCLEROSIS
     Route: 065
  4. OCREVUS [Suspect]
     Active Substance: OCRELIZUMAB
     Dosage: D1
     Route: 065
     Dates: start: 20190809

REACTIONS (4)
  - Nocturnal dyspnoea [Unknown]
  - Coma [Recovered/Resolved]
  - COVID-19 [Recovered/Resolved with Sequelae]
  - Acute respiratory distress syndrome [Recovered/Resolved]

NARRATIVE: CASE EVENT DATE: 202003
